FAERS Safety Report 18625615 (Version 2)
Quarter: 2021Q1

REPORT INFORMATION
  Report Type: Spontaneous
  Country: US (occurrence: US)
  Receive Date: 20201216
  Receipt Date: 20210128
  Transmission Date: 20210419
  Serious: Yes (Other)
  Sender: FDA-Public Use
  Company Number: US-PFIZER INC-2020494213

PATIENT
  Age: 57 Year
  Sex: Female

DRUGS (1)
  1. XELJANZ XR [Suspect]
     Active Substance: TOFACITINIB CITRATE
     Indication: RHEUMATOID ARTHRITIS
     Dosage: 11 MG, ONCE DAILY
     Route: 048
     Dates: start: 20200923, end: 20210119

REACTIONS (14)
  - Condition aggravated [Unknown]
  - Nodule [Unknown]
  - Pain [Unknown]
  - Arthralgia [Unknown]
  - Joint swelling [Unknown]
  - Restlessness [Unknown]
  - Irritability [Unknown]
  - Inflammation [Unknown]
  - Asthenia [Unknown]
  - Loss of personal independence in daily activities [Unknown]
  - Decreased appetite [Unknown]
  - Blood pressure abnormal [Unknown]
  - Insomnia [Unknown]
  - Mobility decreased [Unknown]
